FAERS Safety Report 9973228 (Version 1)
Quarter: 2014Q1

REPORT INFORMATION
  Report Type: Spontaneous
  Country: US (occurrence: None)
  Receive Date: 20140131
  Receipt Date: 20140131
  Transmission Date: 20141002
  Serious: Yes (Hospitalization)
  Sender: FDA-Public Use
  Company Number: 072681

PATIENT
  Age: 27 Year
  Sex: Male

DRUGS (1)
  1. KEPPRA [Suspect]
     Indication: CONVULSION
     Dates: start: 201001

REACTIONS (4)
  - Grand mal convulsion [None]
  - Amnesia [None]
  - Aura [None]
  - Inappropriate schedule of drug administration [None]
